FAERS Safety Report 15069447 (Version 1)
Quarter: 2018Q2

REPORT INFORMATION
  Report Type: Spontaneous
  Country: US (occurrence: US)
  Receive Date: 20180606
  Receipt Date: 20180606
  Transmission Date: 20180711
  Serious: No
  Sender: FDA-Public Use
  Company Number: None

PATIENT
  Age: 46 Year
  Sex: Female
  Weight: 86.18 kg

DRUGS (1)
  1. MIRENA [Suspect]
     Active Substance: LEVONORGESTREL
     Dates: start: 20180511, end: 20180529

REACTIONS (3)
  - Vaginal haemorrhage [None]
  - Uterine infection [None]
  - Muscle spasms [None]

NARRATIVE: CASE EVENT DATE: 20180511
